FAERS Safety Report 9456662 (Version 1)
Quarter: 2013Q3

REPORT INFORMATION
  Report Type: Spontaneous
  Country: GB (occurrence: GB)
  Receive Date: 20130813
  Receipt Date: 20130813
  Transmission Date: 20140515
  Serious: Yes (Hospitalization)
  Sender: FDA-Public Use
  Company Number: GB-WATSON-2013-14406

PATIENT
  Age: 66 Year
  Sex: Female

DRUGS (2)
  1. RAMIPRIL (UNKNOWN) [Suspect]
     Indication: BLOOD PRESSURE INCREASED
     Dosage: 5 MG, UNKNOWN
     Route: 048
     Dates: end: 20130704
  2. NITROGLYCERIN [Concomitant]
     Indication: ANGINA PECTORIS
     Dosage: UNK, UNKNOWN
     Route: 065

REACTIONS (8)
  - Blood pressure increased [Recovered/Resolved]
  - Agitation [Recovered/Resolved]
  - Palpitations [Recovered/Resolved]
  - Dizziness [Recovered/Resolved]
  - Headache [Recovered/Resolved]
  - Dysstasia [Recovered/Resolved]
  - Limb discomfort [Recovered/Resolved]
  - Discomfort [Recovered/Resolved]
